FAERS Safety Report 6693231-1 (Version None)
Quarter: 2010Q2

REPORT INFORMATION
  Report Type: 
  Country: None (occurrence: None)
  Receive Date: 20100421
  Receipt Date: 20100421
  Transmission Date: 20101027
  Serious: Yes (Other)
  Sender: FDA-Public Use
  Company Number: None

PATIENT
  Sex: Female
  Weight: 68.0396 kg

DRUGS (3)
  1. MELOXICAM [Suspect]
     Indication: ARTHRALGIA
     Dosage: 1 DAILY PO
     Route: 048
     Dates: start: 20100416, end: 20100417
  2. MELOXICAM [Suspect]
     Indication: JOINT SWELLING
     Dosage: 1 DAILY PO
     Route: 048
     Dates: start: 20100416, end: 20100417
  3. ACETAMINOPHEN AND HYDROCODONE BITARTRATE [Concomitant]

REACTIONS (1)
  - DRUG HYPERSENSITIVITY [None]
